FAERS Safety Report 9944192 (Version 1)
Quarter: 2014Q1

REPORT INFORMATION
  Report Type: Report from Study
  Country: US (occurrence: US)
  Receive Date: 20140303
  Receipt Date: 20140303
  Transmission Date: 20141002
  Serious: No
  Sender: FDA-Public Use
  Company Number: US-ABBVIE-13P-163-1055795-00

PATIENT
  Age: 49 Year
  Sex: Female

DRUGS (16)
  1. HUMIRA [Suspect]
     Indication: PSORIASIS
     Route: 058
     Dates: start: 20130201
  2. SATHRIS [Concomitant]
     Indication: DEPRESSION
     Dosage: AT BEDTIME
  3. OMEPRAZOLE [Concomitant]
     Indication: GASTROOESOPHAGEAL REFLUX DISEASE
  4. VITAMIN D [Concomitant]
     Indication: PRODUCT USED FOR UNKNOWN INDICATION
  5. OXCARBAZEPINE [Concomitant]
     Indication: DEPRESSION
     Dosage: 1 EVERY AM, 2 AT BEDTIME
  6. LAMOTRIGINE [Concomitant]
     Indication: DEPRESSION
     Dosage: AT BEDTIME
  7. NALTREXONE [Concomitant]
     Indication: DRUG DEPENDENCE
  8. CALCIUM W/VITAMIN D [Concomitant]
     Indication: SUPPLEMENTATION THERAPY
     Dosage: 500/400 MG TWICE DAILY
  9. CELEBREX [Concomitant]
     Indication: PRODUCT USED FOR UNKNOWN INDICATION
  10. LORAZEPAM [Concomitant]
     Indication: ANXIETY
  11. SUMATRIPTAN SUCCINATE [Concomitant]
     Indication: MIGRAINE
  12. ARTHRITIS PAIN RELIEF ER [Concomitant]
     Indication: PRODUCT USED FOR UNKNOWN INDICATION
  13. MINOCYCLINE [Concomitant]
     Indication: EYE INFECTION
  14. FLONASE [Concomitant]
     Indication: HYPERSENSITIVITY
  15. COUPLE OINTMENTS [Concomitant]
     Indication: PRODUCT USED FOR UNKNOWN INDICATION
  16. SPECIAL SHAMPOO [Concomitant]
     Indication: PRODUCT USED FOR UNKNOWN INDICATION

REACTIONS (2)
  - Arthralgia [Unknown]
  - Injection site pain [Unknown]
